FAERS Safety Report 4664102-7 (Version None)
Quarter: 2005Q2

REPORT INFORMATION
  Report Type: 
  Country: None (occurrence: None)
  Receive Date: 20050510
  Receipt Date: 20050427
  Transmission Date: 20051028
  Serious: Yes (Hospitalization)
  Sender: FDA-Public Use
  Company Number: 2005-00784

PATIENT
  Age: 79 Year
  Sex: Male

DRUGS (6)
  1. IMMUCYST [Suspect]
     Indication: BLADDER CANCER
     Dosage: (40.0) I.VES., BLADDER
     Route: 043
     Dates: start: 20050331
  2. BICALUTAMIDE [Concomitant]
  3. NAFTOPIDIL [Concomitant]
  4. TEPRENONE [Concomitant]
  5. ENALAPRIL MALEATE [Concomitant]
  6. ZOPICLONE [Concomitant]

REACTIONS (4)
  - DISSEMINATED TUBERCULOSIS [None]
  - PLEURAL EFFUSION [None]
  - PYELONEPHRITIS [None]
  - RENAL FAILURE ACUTE [None]
